FAERS Safety Report 23944165 (Version 1)
Quarter: 2024Q2

REPORT INFORMATION
  Report Type: Spontaneous
  Country: IN (occurrence: IN)
  Receive Date: 20240606
  Receipt Date: 20240606
  Transmission Date: 20240716
  Serious: Yes (Hospitalization)
  Sender: FDA-Public Use
  Company Number: IN-ALKEM LABORATORIES LIMITED-IN-ALKEM-2024-10682

PATIENT
  Age: 63 Year
  Sex: Male

DRUGS (1)
  1. LIDOCAINE [Suspect]
     Active Substance: LIDOCAINE
     Indication: Anaesthesia
     Dosage: UNK (PERIBULBAR) (LOCAL ANESTHETIC SOLUTION)
     Route: 065

REACTIONS (3)
  - Hypersensitivity [Recovered/Resolved]
  - Optic nerve disorder [Recovered/Resolved]
  - Periorbital oedema [Recovered/Resolved]
